FAERS Safety Report 6182872-6 (Version None)
Quarter: 2009Q2

REPORT INFORMATION
  Report Type: 
  Country: None (occurrence: None)
  Receive Date: 20090507
  Receipt Date: 20090428
  Transmission Date: 20091009
  Serious: Yes (Other)
  Sender: FDA-Public Use
  Company Number: US-AVENTIS-200913681US

PATIENT
  Sex: Female

DRUGS (8)
  1. LANTUS [Suspect]
     Route: 058
     Dates: start: 20060221
  2. GLYBURIDE AND METFORMIN HCL [Concomitant]
     Dosage: DOSE: 1 TAB 5/500
     Route: 048
  3. ASPIRIN [Concomitant]
     Route: 048
  4. POTASSIUM CHLORIDE [Concomitant]
  5. FUROSEMIDE [Concomitant]
  6. TEKTURNA [Concomitant]
     Dosage: DOSE: 300MG/25MG
  7. LEVOTHYROXINE SODIUM [Concomitant]
     Dosage: DOSE: .1MG
  8. COMBIGAN [Concomitant]
     Dosage: DOSE: 1 DROP
     Route: 047

REACTIONS (3)
  - CATARACT [None]
  - EYE HAEMORRHAGE [None]
  - VISION BLURRED [None]
